FAERS Safety Report 9122056 (Version 1)
Quarter: 2013Q1

REPORT INFORMATION
  Report Type: Spontaneous
  Country: US (occurrence: None)
  Receive Date: 20130125
  Receipt Date: 20130125
  Transmission Date: 20140127
  Serious: No
  Sender: FDA-Public Use
  Company Number: 2012US-004451

PATIENT
  Age: 57 Year
  Sex: Male
  Weight: 94 kg

DRUGS (1)
  1. OMONTYS (PEGINESATIDE) SOLUTION FOR INJECTION [Suspect]
     Indication: NEPHROGENIC ANAEMIA
     Route: 042
     Dates: start: 20121105, end: 20121105

REACTIONS (4)
  - Lethargy [None]
  - Presyncope [None]
  - Hyperhidrosis [None]
  - Hypotension [None]
